FAERS Safety Report 20441496 (Version 3)
Quarter: 2023Q2

REPORT INFORMATION
  Report Type: Report from Study
  Country: JP (occurrence: JP)
  Receive Date: 20220208
  Receipt Date: 20230511
  Transmission Date: 20230722
  Serious: Yes (Hospitalization, Other)
  Sender: FDA-Public Use
  Company Number: JP-SAKK-2022SA036323AA

PATIENT
  Age: 81 Year
  Sex: Female
  Weight: 41 kg

DRUGS (6)
  1. ALEMTUZUMAB [Suspect]
     Active Substance: ALEMTUZUMAB
     Indication: T-cell prolymphocytic leukaemia
     Dosage: 3 MG
     Route: 041
     Dates: start: 20210420, end: 20210420
  2. ALEMTUZUMAB [Suspect]
     Active Substance: ALEMTUZUMAB
     Dosage: 10 MG
     Route: 041
     Dates: start: 20210421, end: 20210421
  3. ALEMTUZUMAB [Suspect]
     Active Substance: ALEMTUZUMAB
     Dosage: 30 MG, TIW
     Route: 041
     Dates: start: 20210422, end: 20210615
  4. ACYCLOVIR [Concomitant]
     Active Substance: ACYCLOVIR
     Indication: Herpes zoster
     Dosage: 250 MG, TID
     Route: 041
     Dates: start: 20210624, end: 20210706
  5. ACYCLOVIR [Concomitant]
     Active Substance: ACYCLOVIR
     Indication: Infection prophylaxis
     Dosage: 200 MG, QD
     Route: 048
     Dates: start: 20210424, end: 20210708
  6. SULFAMETHOXAZOLE\TRIMETHOPRIM [Concomitant]
     Active Substance: SULFAMETHOXAZOLE\TRIMETHOPRIM
     Indication: Infection prophylaxis
     Dosage: 0.5 DF, QD
     Route: 048
     Dates: start: 20210424, end: 20210628

REACTIONS (5)
  - Febrile neutropenia [Recovered/Resolved]
  - Cytomegalovirus viraemia [Recovered/Resolved]
  - Chest discomfort [Recovered/Resolved]
  - Herpes zoster [Recovered/Resolved]
  - Dyspnoea [Recovered/Resolved]

NARRATIVE: CASE EVENT DATE: 20210422
